FAERS Safety Report 8936012 (Version 1)
Quarter: 2012Q4

REPORT INFORMATION
  Report Type: Report from Study
  Country: US (occurrence: US)
  Receive Date: 20121130
  Receipt Date: 20121130
  Transmission Date: 20130627
  Serious: No
  Sender: FDA-Public Use
  Company Number: US-ABBOTT-12P-163-0985497-00

PATIENT
  Sex: Male
  Weight: 118.95 kg

DRUGS (28)
  1. ANDROGEL [Suspect]
     Indication: BLOOD TESTOSTERONE DECREASED
     Dosage: 2 pumps
     Route: 061
     Dates: start: 201207
  2. XANAX [Concomitant]
     Indication: ANXIETY
     Dosage: Unknown
  3. PROTONIX [Concomitant]
     Indication: GASTROOESOPHAGEAL REFLUX DISEASE
     Dosage: Unknown
  4. COREG [Concomitant]
     Indication: HYPERTENSION
     Dosage: Unknown
  5. VENTOLIN [Concomitant]
     Indication: CHRONIC OBSTRUCTIVE PULMONARY DISEASE
     Route: 055
  6. K-DUR [Concomitant]
     Indication: MINERAL SUPPLEMENTATION
     Dosage: Unknown
  7. LASIX [Concomitant]
     Indication: FLUID RETENTION
     Dosage: Unknown
  8. NIASPAN [Concomitant]
     Indication: BLOOD CHOLESTEROL INCREASED
     Dosage: Unknown
  9. FLOMAX [Concomitant]
     Indication: POLLAKIURIA
     Dosage: Unknown
  10. LISINOPRIL [Concomitant]
     Indication: HYPERTENSION
     Dosage: Unknown
  11. CRESTOR [Concomitant]
     Indication: BLOOD CHOLESTEROL INCREASED
     Dosage: Unknown
  12. TRILIPIX [Concomitant]
     Indication: BLOOD CHOLESTEROL INCREASED
     Dosage: Unknown
  13. ZAROXOLYN [Concomitant]
     Indication: FLUID RETENTION
     Dosage: Unknown
  14. HUMULIN R [Concomitant]
     Indication: DIABETES MELLITUS
     Dosage: Unknown
  15. NASONEX [Concomitant]
     Indication: HYPERSENSITIVITY
     Dosage: Unknown
  16. NITROGLYCERINE [Concomitant]
     Indication: CHEST PAIN
     Route: 060
  17. NEURONTIN [Concomitant]
     Indication: NEURALGIA
     Dosage: Unknown
  18. ASPIRIN [Concomitant]
     Indication: ANTICOAGULANT THERAPY
  19. ZETIA [Concomitant]
     Indication: CARDIAC DISORDER
     Dosage: Unknown
  20. CYMBALTA [Concomitant]
     Indication: DEPRESSION
     Dosage: Unknown
  21. NORCO [Concomitant]
     Indication: PAIN
     Dosage: Unknown
  22. SOMA [Concomitant]
     Indication: MUSCLE RELAXANT THERAPY
     Dosage: Unknown
  23. MORPHINE SULFATE [Concomitant]
     Indication: PAIN
     Dosage: Unknown
  24. REGLAN [Concomitant]
     Indication: GASTROINTESTINAL MOTILITY DISORDER
     Dosage: Unknown
  25. FOLTX [Concomitant]
     Indication: SUPPLEMENTATION THERAPY
     Dosage: Unknown
  26. LOVAZA [Concomitant]
     Indication: BLOOD CHOLESTEROL INCREASED
     Dosage: Unknown
  27. PLAVIX [Concomitant]
     Indication: ANTICOAGULANT THERAPY
     Dosage: Unknown
  28. PROMETHAZINE [Concomitant]
     Indication: NAUSEA
     Dosage: Unknown

REACTIONS (1)
  - Fatigue [Not Recovered/Not Resolved]
